FAERS Safety Report 6402022-8 (Version None)
Quarter: 2009Q4

REPORT INFORMATION
  Report Type: 
  Country: None (occurrence: None)
  Receive Date: 20091015
  Receipt Date: 20091007
  Transmission Date: 20100525
  Serious: Yes (Other)
  Sender: FDA-Public Use
  Company Number: US-JNJCH-2009024252

PATIENT
  Sex: Male

DRUGS (1)
  1. LISTERINE WHITENING PEN [Suspect]
     Indication: DENTAL CARE
     Dosage: TEXT:UNSPECIFIED
     Route: 048

REACTIONS (3)
  - DRUG INEFFECTIVE [None]
  - PRODUCT CONTAMINATION [None]
  - PRODUCT QUALITY ISSUE [None]
